FAERS Safety Report 5913461-3 (Version None)
Quarter: 2008Q4

REPORT INFORMATION
  Report Type: 
  Country: None (occurrence: None)
  Receive Date: 20081007
  Receipt Date: 20080923
  Transmission Date: 20090506
  Serious: Yes (Hospitalization, Other)
  Sender: FDA-Public Use
  Company Number: 2008US002557

PATIENT
  Age: 34 Year
  Sex: Female
  Weight: 43 kg

DRUGS (4)
  1. AMBISOME [Suspect]
     Indication: MENINGITIS CRYPTOCOCCAL
     Dosage: 30 MG, UID/QD
  2. 5-FU KYOWA (FLUOROURACIL) [Concomitant]
  3. FLUCONAZOLE [Concomitant]
  4. VORICONAZOLE (VORICONAZOLE) [Concomitant]

REACTIONS (2)
  - BRAIN HERNIATION [None]
  - BRAIN OEDEMA [None]
